FAERS Safety Report 13585327 (Version 1)
Quarter: 2017Q2

REPORT INFORMATION
  Report Type: Spontaneous
  Country: FR (occurrence: FR)
  Receive Date: 20170526
  Receipt Date: 20170526
  Transmission Date: 20170830
  Serious: Yes (Death, Other)
  Sender: FDA-Public Use
  Company Number: FR-LANNETT COMPANY, INC.-FR-2017LAN000793

PATIENT
  Age: 28 Year
  Sex: Male

DRUGS (4)
  1. BACLOFEN (20MG) [Suspect]
     Active Substance: BACLOFEN
     Indication: ALCOHOLISM
     Dosage: UNK
     Route: 065
  2. BACLOFEN (20MG) [Suspect]
     Active Substance: BACLOFEN
     Indication: MAJOR DEPRESSION
  3. OXAZEPAM. [Suspect]
     Active Substance: OXAZEPAM
     Indication: ALCOHOLISM
     Dosage: UNK
     Route: 065
  4. OXAZEPAM. [Suspect]
     Active Substance: OXAZEPAM
     Indication: MAJOR DEPRESSION

REACTIONS (6)
  - Status epilepticus [Unknown]
  - Toxicity to various agents [Fatal]
  - Asphyxia [Fatal]
  - Cardiac arrest [Unknown]
  - Off label use [Unknown]
  - Hypoxic-ischaemic encephalopathy [Fatal]
